FAERS Safety Report 12718088 (Version 1)
Quarter: 2016Q3

REPORT INFORMATION
  Report Type: Spontaneous
  Country: US (occurrence: US)
  Receive Date: 20160906
  Receipt Date: 20160906
  Transmission Date: 20161109
  Serious: Yes (Hospitalization)
  Sender: FDA-Public Use
  Company Number: US-JNJFOC-20160827541

PATIENT
  Age: 55 Year
  Sex: Male

DRUGS (4)
  1. ASPIRIN. [Concomitant]
     Active Substance: ASPIRIN
     Route: 048
  2. INSULIN [Concomitant]
     Active Substance: INSULIN NOS
     Indication: TYPE 2 DIABETES MELLITUS
     Route: 050
  3. XARELTO [Suspect]
     Active Substance: RIVAROXABAN
     Indication: ATRIAL FLUTTER
     Route: 048
     Dates: start: 201608
  4. FENOFIBRATE. [Concomitant]
     Active Substance: FENOFIBRATE
     Route: 048

REACTIONS (3)
  - Product use issue [Unknown]
  - Pleural effusion [Recovered/Resolved]
  - Off label use [Unknown]

NARRATIVE: CASE EVENT DATE: 201608
